FAERS Safety Report 19760663 (Version 1)
Quarter: 2021Q3

REPORT INFORMATION
  Report Type: Spontaneous
  Country: FR (occurrence: FR)
  Receive Date: 20210830
  Receipt Date: 20210830
  Transmission Date: 20211014
  Serious: Yes (Hospitalization)
  Sender: FDA-Public Use
  Company Number: FR-ROCHE-2899665

PATIENT
  Age: 75 Year
  Sex: Male
  Weight: 75 kg

DRUGS (1)
  1. ATEZOLIZUMAB. [Suspect]
     Active Substance: ATEZOLIZUMAB
     Indication: HEPATOCELLULAR CARCINOMA
     Route: 065
     Dates: start: 202102

REACTIONS (1)
  - Macular hole [Recovered/Resolved]

NARRATIVE: CASE EVENT DATE: 20210622
